FAERS Safety Report 5801462-5 (Version None)
Quarter: 2008Q3

REPORT INFORMATION
  Report Type: 
  Country: None (occurrence: None)
  Receive Date: 20080707
  Receipt Date: 20080703
  Transmission Date: 20090109
  Serious: Yes (Death, Life-Threatening, Other)
  Sender: FDA-Public Use
  Company Number: GB-TEVA-162899ISR

PATIENT
  Age: 35 Year
  Sex: Male
  Weight: 70 kg

DRUGS (4)
  1. DIAZEPAM [Suspect]
     Route: 048
     Dates: end: 20071005
  2. TEMAZEPAM [Suspect]
     Route: 048
     Dates: end: 20071005
  3. FENTANYL [Suspect]
     Route: 062
     Dates: end: 20071005
  4. TRAMADOL HCL [Suspect]
     Route: 048
     Dates: end: 20071005

REACTIONS (4)
  - CONFUSIONAL STATE [None]
  - DISEASE PROGRESSION [None]
  - HEPATIC ENCEPHALOPATHY [None]
  - OESOPHAGEAL HAEMORRHAGE [None]
